FAERS Safety Report 5750625-6 (Version None)
Quarter: 2008Q2

REPORT INFORMATION
  Report Type: 
  Country: None (occurrence: None)
  Receive Date: 20080528
  Receipt Date: 20080509
  Transmission Date: 20081010
  Serious: No
  Sender: FDA-Public Use
  Company Number: US-ABBOTT-08P-163-0451709-00

PATIENT
  Sex: Female
  Weight: 81.72 kg

DRUGS (3)
  1. SIMCOR [Suspect]
     Indication: BLOOD CHOLESTEROL INCREASED
     Route: 048
     Dates: start: 20080507
  2. THYROID PILL [Concomitant]
     Indication: THYROID DISORDER
     Route: 048
     Dates: start: 19980101
  3. BLOOD PRESSURE PILL [Concomitant]
     Indication: HYPERTENSION
     Route: 048
     Dates: start: 20040101

REACTIONS (1)
  - ABNORMAL DREAMS [None]
